FAERS Safety Report 24917312 (Version 1)
Quarter: 2025Q1

REPORT INFORMATION
  Report Type: Spontaneous
  Country: US (occurrence: None)
  Receive Date: 20250202
  Receipt Date: 20250202
  Transmission Date: 20250408
  Serious: Yes (Life-Threatening, Disabling, Other)
  Sender: FDA-CTU
  Company Number: None

PATIENT
  Age: 57 Year
  Sex: Female
  Weight: 104.85 kg

DRUGS (2)
  1. LITHIUM [Suspect]
     Active Substance: LITHIUM
  2. ZYPREXA [Suspect]
     Active Substance: OLANZAPINE

REACTIONS (11)
  - Skin disorder [None]
  - Eyelid disorder [None]
  - Toxicity to various agents [None]
  - Withdrawal syndrome [None]
  - Weight increased [None]
  - Poliomyelitis [None]
  - Fatigue [None]
  - Musculoskeletal stiffness [None]
  - Pain [None]
  - Nonspecific reaction [None]
  - Sleep disorder [None]

NARRATIVE: CASE EVENT DATE: 20241206
